FAERS Safety Report 7995142-8 (Version None)
Quarter: 2011Q4

REPORT INFORMATION
  Report Type: 
  Country: None (occurrence: None)
  Receive Date: 20111220
  Receipt Date: 20111212
  Transmission Date: 20120403
  Serious: Yes (Hospitalization)
  Sender: FDA-Public Use
  Company Number: JP-GLAXOSMITHKLINE-B0568424A

PATIENT
  Sex: Male

DRUGS (14)
  1. LAMICTAL [Suspect]
     Indication: BIPOLAR DISORDER
     Dosage: 50MG PER DAY
     Route: 048
     Dates: start: 20090204, end: 20090330
  2. LEXOTAN [Concomitant]
     Dosage: 5MG PER DAY
     Route: 048
     Dates: start: 20080901, end: 20090330
  3. SEROQUEL [Concomitant]
     Route: 048
     Dates: start: 20090403
  4. RISPERDAL [Concomitant]
     Route: 048
     Dates: start: 20090403
  5. ZOLOFT [Concomitant]
     Route: 048
     Dates: start: 20090402, end: 20090407
  6. VALPROATE SODIUM [Concomitant]
     Route: 048
  7. ABILIFY [Concomitant]
     Indication: BIPOLAR I DISORDER
     Dosage: 12MG PER DAY
     Route: 048
     Dates: start: 20071215, end: 20090330
  8. NITRAZEPAM [Concomitant]
     Route: 048
     Dates: start: 20090410
  9. VALPROATE SODIUM [Concomitant]
     Indication: BIPOLAR I DISORDER
     Dosage: 600MG PER DAY
     Route: 048
     Dates: start: 20070501, end: 20090330
  10. SEROQUEL [Concomitant]
     Indication: BIPOLAR I DISORDER
     Dosage: 100MG PER DAY
     Route: 048
     Dates: start: 20080901, end: 20090330
  11. ZOLOFT [Concomitant]
     Indication: DEPRESSION
     Dosage: 100MG PER DAY
     Route: 048
     Dates: start: 20080901, end: 20090330
  12. LITHIUM CARBONATE [Concomitant]
     Indication: BIPOLAR I DISORDER
     Dosage: 800MG PER DAY
     Route: 048
     Dates: start: 20080901, end: 20090330
  13. NITRAZEPAM [Concomitant]
     Indication: INSOMNIA
     Dosage: 5MG PER DAY
     Route: 048
     Dates: start: 20080901, end: 20090330
  14. LITHIUM CARBONATE [Concomitant]
     Route: 048
     Dates: start: 20090402

REACTIONS (31)
  - RESTLESSNESS [None]
  - PORIOMANIA [None]
  - PHARYNGEAL OEDEMA [None]
  - LIVER FUNCTION TEST ABNORMAL [None]
  - TREMOR [None]
  - LIP OEDEMA [None]
  - HUMAN HERPESVIRUS 6 INFECTION [None]
  - HEPATIC FUNCTION ABNORMAL [None]
  - CONJUNCTIVAL HYPERAEMIA [None]
  - EYE PAIN [None]
  - HALLUCINATION [None]
  - MENTAL DISORDER [None]
  - OCULAR HYPERAEMIA [None]
  - DRY EYE [None]
  - DRUG ERUPTION [None]
  - ALOPECIA [None]
  - AGGRESSION [None]
  - DERMATITIS EXFOLIATIVE [None]
  - ERYTHEMA [None]
  - RASH GENERALISED [None]
  - MUSCLE SPASMS [None]
  - DRUG RASH WITH EOSINOPHILIA AND SYSTEMIC SYMPTOMS [None]
  - OEDEMA MUCOSAL [None]
  - WITHDRAWAL SYNDROME [None]
  - WHITE BLOOD CELL COUNT DECREASED [None]
  - LACRIMAL DISORDER [None]
  - CONFUSIONAL STATE [None]
  - OROPHARYNGEAL PAIN [None]
  - PYREXIA [None]
  - DISORIENTATION [None]
  - BLOOD IMMUNOGLOBULIN G INCREASED [None]
